FAERS Safety Report 8186960-4 (Version None)
Quarter: 2012Q1

REPORT INFORMATION
  Report Type: 
  Country: None (occurrence: None)
  Receive Date: 20120306
  Receipt Date: 20120302
  Transmission Date: 20120608
  Serious: Yes (Other)
  Sender: FDA-Public Use
  Company Number: US-PFIZER INC-2012057073

PATIENT
  Sex: Male
  Weight: 204 kg

DRUGS (3)
  1. PROGESTERONE [Concomitant]
     Dosage: 100 MG, DAILY
  2. VIAGRA [Suspect]
     Indication: PENIS DISORDER
     Dosage: 100 MG, DAILY
     Route: 048
     Dates: start: 20111201
  3. VIAGRA [Suspect]
     Dosage: UNK
     Route: 048

REACTIONS (2)
  - TESTICULAR DISORDER [None]
  - INCORRECT DOSE ADMINISTERED [None]
